FAERS Safety Report 4958870-4 (Version None)
Quarter: 2006Q1

REPORT INFORMATION
  Report Type: 
  Country: None (occurrence: None)
  Receive Date: 20060331
  Receipt Date: 20060301
  Transmission Date: 20060701
  Serious: Yes (Hospitalization, Disabling)
  Sender: FDA-Public Use
  Company Number: US-BOEHRINGER INGELHEIM PHARMACEUTICALS, INC.-2006-BP-02404BP

PATIENT
  Age: 83 Year
  Sex: Female

DRUGS (1)
  1. MIRAPEX [Suspect]
     Dosage: 0.5
     Route: 048
     Dates: start: 20040401, end: 20051101

REACTIONS (2)
  - GENERALISED OEDEMA [None]
  - OEDEMA [None]
